FAERS Safety Report 4869002-5 (Version None)
Quarter: 2005Q4

REPORT INFORMATION
  Report Type: 
  Country: None (occurrence: None)
  Receive Date: 20051229
  Receipt Date: 20050929
  Transmission Date: 20060501
  Serious: Yes (Hospitalization, Disabling, Other)
  Sender: FDA-Public Use
  Company Number: US-MERCK-0510USA00067

PATIENT
  Age: 64 Year
  Sex: Female
  Weight: 75 kg

DRUGS (17)
  1. VIOXX [Suspect]
     Indication: ARTHRITIS
     Route: 048
     Dates: start: 19990929, end: 20000208
  2. VIOXX [Suspect]
     Route: 048
     Dates: start: 20000824, end: 20001023
  3. VIOXX [Suspect]
     Route: 048
     Dates: start: 20010208, end: 20010323
  4. PRINZIDE [Concomitant]
     Route: 065
  5. DECADRON [Concomitant]
     Route: 065
  6. COVERA-HS [Concomitant]
     Route: 065
  7. LORCET-HD [Concomitant]
     Route: 065
  8. DARVOCET-N 100 [Concomitant]
     Route: 065
  9. PLENDIL [Concomitant]
     Route: 065
  10. AMBIEN [Concomitant]
     Route: 065
  11. COUMADIN [Concomitant]
     Route: 065
  12. LOPRESSOR [Concomitant]
     Route: 065
  13. NITROGLYCERIN [Concomitant]
     Route: 065
  14. LOVENOX [Concomitant]
     Route: 065
  15. METHYLPREDNISOLONE [Concomitant]
     Route: 065
  16. HYDROCHLOROTHIAZIDE [Concomitant]
     Route: 065
  17. COZAAR [Concomitant]
     Route: 065

REACTIONS (17)
  - ANGINA PECTORIS [None]
  - AORTIC ANEURYSM [None]
  - ARTERIOSCLEROSIS [None]
  - ARTHRALGIA [None]
  - ASTHMA [None]
  - CARDIAC DISORDER [None]
  - CHOKING [None]
  - CHRONIC OBSTRUCTIVE PULMONARY DISEASE [None]
  - DYSPNOEA [None]
  - FALL [None]
  - HYPERTENSIVE HEART DISEASE [None]
  - LOWER LIMB FRACTURE [None]
  - MYOCARDIAL INFARCTION [None]
  - PALPITATIONS [None]
  - PULMONARY EMBOLISM [None]
  - PYELONEPHRITIS [None]
  - RESPIRATORY DISTRESS [None]
